FAERS Safety Report 9565047 (Version 2)
Quarter: 2013Q4

REPORT INFORMATION
  Report Type: Spontaneous
  Country: DK (occurrence: CA)
  Receive Date: 20130930
  Receipt Date: 20131003
  Transmission Date: 20140711
  Serious: Yes (Death)
  Sender: FDA-Public Use
  Company Number: CA-FRI-1000049144

PATIENT
  Age: 49 Year
  Sex: Female

DRUGS (2)
  1. CELEXA [Suspect]
     Dosage: GRADUALLY INCREASED (NOS)
     Route: 048
     Dates: end: 201002
  2. CELEXA [Suspect]
     Dosage: OVERDOSE CITALOPRAM 80 MG DAILY
     Route: 048
     Dates: start: 201002

REACTIONS (1)
  - Overdose [Fatal]
